FAERS Safety Report 20659556 (Version 8)
Quarter: 2022Q2

REPORT INFORMATION
  Report Type: Spontaneous
  Country: US (occurrence: US)
  Receive Date: 20220331
  Receipt Date: 20220524
  Transmission Date: 20220721
  Serious: Yes (Disabling, Other)
  Sender: FDA-Public Use
  Company Number: US-PFIZER INC-202200473798

PATIENT
  Age: 62 Year
  Sex: Male

DRUGS (1)
  1. PRISTIQ EXTENDED-RELEASE [Suspect]
     Active Substance: DESVENLAFAXINE SUCCINATE
     Dosage: 50 MG

REACTIONS (11)
  - Craniocerebral injury [Unknown]
  - Road traffic accident [Unknown]
  - Fall [Unknown]
  - Multiple fractures [Unknown]
  - Joint dislocation [Unknown]
  - Facial bones fracture [Unknown]
  - Asphyxia [Unknown]
  - Aphasia [Unknown]
  - Drug withdrawal syndrome [Unknown]
  - Stress [Unknown]
  - Malaise [Unknown]
